FAERS Safety Report 14601372 (Version 1)
Quarter: 2018Q1

REPORT INFORMATION
  Report Type: Spontaneous
  Country: US (occurrence: US)
  Receive Date: 20180305
  Receipt Date: 20180305
  Transmission Date: 20180509
  Serious: Yes (Other)
  Sender: FDA-Public Use
  Company Number: US-ABBVIE-18K-163-2278489-00

PATIENT

DRUGS (1)
  1. HUMIRA [Suspect]
     Active Substance: ADALIMUMAB
     Indication: PRODUCT USED FOR UNKNOWN INDICATION
     Route: 058

REACTIONS (7)
  - Renal impairment [Unknown]
  - Fatigue [Unknown]
  - Dehydration [Unknown]
  - Mitral valve incompetence [Unknown]
  - Weight increased [Unknown]
  - Mobility decreased [Unknown]
  - Peripheral swelling [Unknown]
